FAERS Safety Report 19809627 (Version 1)
Quarter: 2021Q3

REPORT INFORMATION
  Report Type: Spontaneous
  Country: US (occurrence: US)
  Receive Date: 20210908
  Receipt Date: 20210908
  Transmission Date: 20211014
  Serious: No
  Sender: FDA-Public Use
  Company Number: US-ROCHE-2790978

PATIENT
  Sex: Female

DRUGS (3)
  1. ALECENSA [Suspect]
     Active Substance: ALECTINIB HYDROCHLORIDE
     Indication: LUNG NEOPLASM MALIGNANT
     Route: 048
     Dates: start: 20210118
  2. ALECENSA [Suspect]
     Active Substance: ALECTINIB HYDROCHLORIDE
     Route: 048
     Dates: start: 20210217
  3. ALECENSA [Suspect]
     Active Substance: ALECTINIB HYDROCHLORIDE
     Route: 048
     Dates: start: 202103

REACTIONS (2)
  - Fatigue [Unknown]
  - Myalgia [Unknown]
